FAERS Safety Report 21722342 (Version 1)
Quarter: 2022Q4

REPORT INFORMATION
  Report Type: Spontaneous
  Country: GR (occurrence: GR)
  Receive Date: 20221213
  Receipt Date: 20221213
  Transmission Date: 20230113
  Serious: Yes (Other)
  Sender: FDA-Public Use
  Company Number: None

PATIENT
  Age: 79 Year
  Sex: Male
  Weight: 77 kg

DRUGS (3)
  1. PAXLOVID [Suspect]
     Active Substance: NIRMATRELVIR\RITONAVIR
     Indication: COVID-19 treatment
     Dosage: [PF-07321332 300 MG]/[RITONAVIR 100 MG]; 2X/DAY
     Route: 048
     Dates: start: 20221026, end: 20221030
  2. OPTODROP [Concomitant]
     Indication: Glaucoma
     Dosage: 1 DROP, 2X/DAY (1 DROP IN THE MORNING AND AT NIGHT)
     Dates: start: 20161001
  3. OLARTAN PLUS [Concomitant]
     Indication: Hypertension
     Dosage: 1 DF, 1X/DAY
     Dates: start: 20161101

REACTIONS (1)
  - Hypertension [Recovered/Resolved]

NARRATIVE: CASE EVENT DATE: 20221026
